FAERS Safety Report 17692564 (Version 4)
Quarter: 2022Q3

REPORT INFORMATION
  Report Type: Other
  Country: FR (occurrence: None)
  Receive Date: 20200422
  Receipt Date: 20220725
  Transmission Date: 20221027
  Serious: Yes (Other)
  Sender: FDA-Public Use
  Company Number: FR-ROCHE-2576992

PATIENT
  Age: 68 Year
  Sex: Male
  Weight: 80 kg

DRUGS (23)
  1. ATEZOLIZUMAB [Suspect]
     Active Substance: ATEZOLIZUMAB
     Indication: Non-small cell lung cancer metastatic
     Dosage: MOST RECENT DOSE PRIOR TO EVENT ONSET: 18/DEC/2019
     Route: 041
     Dates: start: 20190814
  2. ATEZOLIZUMAB [Suspect]
     Active Substance: ATEZOLIZUMAB
     Dosage: MOST RECENT DOSE PRIOR TO EVENT ONSET: 18/DEC/2019
     Route: 042
     Dates: start: 20190904
  3. ATEZOLIZUMAB [Suspect]
     Active Substance: ATEZOLIZUMAB
     Dosage: MOST RECENT DOSE PRIOR TO EVENT ONSET: 18/DEC/2019
     Route: 042
     Dates: start: 20190925
  4. ATEZOLIZUMAB [Suspect]
     Active Substance: ATEZOLIZUMAB
     Dosage: MOST RECENT DOSE PRIOR TO EVENT ONSET: 18/DEC/2019
     Route: 042
     Dates: start: 20191016
  5. ATEZOLIZUMAB [Suspect]
     Active Substance: ATEZOLIZUMAB
     Dosage: MOST RECENT DOSE PRIOR TO EVENT ONSET: 18/DEC/2019
     Route: 042
     Dates: start: 20191106
  6. ATEZOLIZUMAB [Suspect]
     Active Substance: ATEZOLIZUMAB
     Dosage: MOST RECENT DOSE PRIOR TO EVENT ONSET: 18/DEC/2019
     Route: 042
     Dates: start: 20191127
  7. ATEZOLIZUMAB [Suspect]
     Active Substance: ATEZOLIZUMAB
     Dosage: MOST RECENT DOSE PRIOR TO EVENT ONSET: 18/DEC/2019
     Route: 042
     Dates: start: 20191218
  8. KARDEGIC [Concomitant]
     Active Substance: ASPIRIN DL-LYSINE
  9. PLAVIX [Concomitant]
     Active Substance: CLOPIDOGREL BISULFATE
     Dates: start: 2017
  10. FUROSEMIDE [Concomitant]
     Active Substance: FUROSEMIDE
     Dates: start: 2017, end: 202001
  11. INDACATEROL [Concomitant]
     Active Substance: INDACATEROL
     Dates: start: 201709, end: 20200227
  12. PANTOPRAZOLE [Concomitant]
     Active Substance: PANTOPRAZOLE
     Indication: Prophylaxis
     Dates: start: 2017
  13. FUROSEMIDE [Concomitant]
     Active Substance: FUROSEMIDE
     Dates: start: 202001
  14. CIPROFLOXACIN [Concomitant]
     Active Substance: CIPROFLOXACIN
     Dates: start: 202001, end: 202001
  15. CEFTRIAXONE SODIUM [Concomitant]
     Active Substance: CEFTRIAXONE SODIUM
     Dates: start: 202001, end: 202001
  16. GLYCOPYRROLATE [Concomitant]
     Active Substance: GLYCOPYRROLATE
     Dates: start: 20200228
  17. FLUTICASONE FUROATE\VILANTEROL TRIFENATATE [Concomitant]
     Active Substance: FLUTICASONE FUROATE\VILANTEROL TRIFENATATE
     Dates: start: 20200228
  18. PREDNISOLONE SODIUM METAZOATE [Concomitant]
     Active Substance: PREDNISOLONE SODIUM METAZOATE
     Dates: start: 20200306
  19. CEFTRIAXONE [Concomitant]
     Active Substance: CEFTRIAXONE
     Dates: start: 20200229, end: 20200302
  20. FUNGIZONE [Concomitant]
     Active Substance: AMPHOTERICIN B
     Dates: start: 20200228, end: 20200310
  21. PACLITAXEL [Concomitant]
     Active Substance: PACLITAXEL
     Dates: start: 20201001, end: 20201112
  22. NAVELBINE [Concomitant]
     Active Substance: VINORELBINE TARTRATE
     Dates: start: 20210316
  23. ATEZOLIZUMAB [Concomitant]
     Active Substance: ATEZOLIZUMAB
     Route: 065

REACTIONS (1)
  - Hypoxia [Not Recovered/Not Resolved]

NARRATIVE: CASE EVENT DATE: 20200108
